FAERS Safety Report 18073629 (Version 1)
Quarter: 2020Q3

REPORT INFORMATION
  Report Type: Spontaneous
  Country: DE (occurrence: DE)
  Receive Date: 20200727
  Receipt Date: 20200727
  Transmission Date: 20201103
  Serious: Yes (Life-Threatening, Hospitalization, Other)
  Sender: FDA-Public Use
  Company Number: DE-JNJFOC-20200730173

PATIENT
  Age: 80 Year
  Sex: Male
  Weight: 75 kg

DRUGS (3)
  1. SULFASALAZINE DELAYED?RELEASE [Suspect]
     Active Substance: SULFASALAZINE
     Indication: RHEUMATOID ARTHRITIS
     Dosage: DAILY DOSE: 4 DF DOSAGE FORM EVERY DAYS 2 SEPARATED DOSES
     Route: 048
     Dates: start: 202003, end: 20200505
  2. XARELTO [Suspect]
     Active Substance: RIVAROXABAN
     Indication: ATRIAL FIBRILLATION
     Dosage: DAILY DOSE: 15 MG MILLGRAM(S) EVERY DAYS
     Route: 048
     Dates: start: 20200402, end: 20200506
  3. VYNDAQEL [Suspect]
     Active Substance: TAFAMIDIS MEGLUMINE
     Indication: AMYLOIDOSIS SENILE
     Dosage: DAILY DOSE: 20 MG MILLGRAM(S) EVERY DAYS
     Route: 048
     Dates: start: 20200421, end: 20200506

REACTIONS (2)
  - Neutropenia [Recovered/Resolved]
  - Pyrexia [Recovered/Resolved]

NARRATIVE: CASE EVENT DATE: 20200504
